FAERS Safety Report 9331823 (Version 1)
Quarter: 2013Q2

REPORT INFORMATION
  Report Type: Spontaneous
  Country: US (occurrence: US)
  Receive Date: 20130605
  Receipt Date: 20130605
  Transmission Date: 20140414
  Serious: No
  Sender: FDA-Public Use
  Company Number: US-PFIZER INC-2013166545

PATIENT
  Age: 71 Year
  Sex: Female
  Weight: 63.49 kg

DRUGS (2)
  1. LEVOXYL [Suspect]
     Indication: AUTOIMMUNE THYROIDITIS
     Dosage: 125 UG, 1X/DAY
     Dates: start: 2008
  2. ZOLOFT [Concomitant]
     Indication: ANXIETY
     Dosage: 100 MG, 1X/DAY

REACTIONS (4)
  - Product quality issue [Not Recovered/Not Resolved]
  - Arthralgia [Not Recovered/Not Resolved]
  - Somnolence [Not Recovered/Not Resolved]
  - Fatigue [Not Recovered/Not Resolved]
